FAERS Safety Report 10708696 (Version 1)
Quarter: 2015Q1

REPORT INFORMATION
  Report Type: Spontaneous
  Country: BR (occurrence: US)
  Receive Date: 20150113
  Receipt Date: 20150113
  Transmission Date: 20150721
  Serious: Yes (Other)
  Sender: FDA-Public Use
  Company Number: US-BAUSCH-BL-2015-000325

PATIENT
  Age: 75 Year
  Sex: Female

DRUGS (19)
  1. DEXAMETHASONE. [Suspect]
     Active Substance: DEXAMETHASONE
     Indication: AGE-RELATED MACULAR DEGENERATION
     Dosage: (0.1ML/0.4MG)
     Dates: start: 20090923
  2. TRIAMCINOLONE [Suspect]
     Active Substance: TRIAMCINOLONE
     Indication: AGE-RELATED MACULAR DEGENERATION
     Dosage: (0.1ML/4MG)
     Dates: start: 2006
  3. LUCENTIS [Suspect]
     Active Substance: RANIBIZUMAB
     Indication: AGE-RELATED MACULAR DEGENERATION
     Dosage: (0.06ML/0.6MG)
     Dates: start: 2008
  4. BEVACIZUMAB [Suspect]
     Active Substance: BEVACIZUMAB
     Dosage: (0.08ML/2MG)
     Dates: start: 2006
  5. LUCENTIS [Suspect]
     Active Substance: RANIBIZUMAB
     Dosage: (0.06ML/0.6MG)
     Dates: start: 2013
  6. BEVACIZUMAB [Suspect]
     Active Substance: BEVACIZUMAB
     Dosage: (0.08ML/2MG)
     Dates: start: 20090923
  7. BEVACIZUMAB [Suspect]
     Active Substance: BEVACIZUMAB
     Dosage: (0.08ML/2MG)
     Dates: start: 2010
  8. VISUDYNE [Suspect]
     Active Substance: VERTEPORFIN
     Indication: AGE-RELATED MACULAR DEGENERATION
     Dosage: (6.0MG/M2 BODY AREA, FLUENCY OF 600 MW/CM2-USED 9.6MG)
     Dates: start: 2009
  9. LUCENTIS [Suspect]
     Active Substance: RANIBIZUMAB
     Dosage: (0.06ML/0.6MG)
     Dates: start: 2012
  10. BEVACIZUMAB [Suspect]
     Active Substance: BEVACIZUMAB
     Dosage: (0.08ML/2MG)
     Dates: start: 2006
  11. BEVACIZUMAB [Suspect]
     Active Substance: BEVACIZUMAB
     Dosage: (0.08ML/2MG)
     Dates: start: 2007
  12. BEVACIZUMAB [Suspect]
     Active Substance: BEVACIZUMAB
     Dosage: (0.08ML/2MG)
     Dates: start: 2008
  13. BEVACIZUMAB [Suspect]
     Active Substance: BEVACIZUMAB
     Dosage: (0.08ML/2MG)
     Dates: start: 2012
  14. LUCENTIS [Suspect]
     Active Substance: RANIBIZUMAB
     Dosage: (0.06ML/0.6MG)
     Dates: start: 2014
  15. BEVACIZUMAB [Suspect]
     Active Substance: BEVACIZUMAB
     Indication: AGE-RELATED MACULAR DEGENERATION
     Dosage: (0.08ML/2MG)
     Dates: start: 2005
  16. LUCENTIS [Suspect]
     Active Substance: RANIBIZUMAB
     Dosage: (0.06ML/0.6MG)
     Dates: start: 2009
  17. BEVACIZUMAB [Suspect]
     Active Substance: BEVACIZUMAB
     Dosage: (0.08ML/2MG)
     Dates: start: 20100719
  18. BEVACIZUMAB [Suspect]
     Active Substance: BEVACIZUMAB
     Dosage: (0.08ML/2MG)
     Dates: start: 20110124
  19. BEVACIZUMAB [Suspect]
     Active Substance: BEVACIZUMAB
     Dosage: (0.08ML/2MG)
     Dates: start: 2011

REACTIONS (5)
  - Macular fibrosis [Unknown]
  - Visual acuity reduced [Unknown]
  - Cataract [Unknown]
  - Vitreous loss [Unknown]
  - Tachyphylaxis [Unknown]
